FAERS Safety Report 6203840-1 (Version None)
Quarter: 2009Q2

REPORT INFORMATION
  Report Type: 
  Country: None (occurrence: None)
  Receive Date: 20090527
  Receipt Date: 20090518
  Transmission Date: 20091009
  Serious: Yes (Hospitalization)
  Sender: FDA-Public Use
  Company Number: TW-PFIZER INC-2009215625

PATIENT
  Age: 42 Year

DRUGS (7)
  1. BLINDED *PLACEBO [Suspect]
     Indication: NON-SMALL CELL LUNG CANCER
     Dosage: 37.5 MG, 1X/DAY
     Route: 048
     Dates: start: 20080723, end: 20090429
  2. BLINDED SUNITINIB MALATE [Suspect]
     Indication: NON-SMALL CELL LUNG CANCER
     Dosage: 37.5 MG, 1X/DAY
     Route: 048
     Dates: start: 20080723, end: 20090429
  3. *ERLOTINIB [Suspect]
     Indication: NON-SMALL CELL LUNG CANCER
     Dosage: 150 MG, 1X/DAY
     Route: 048
     Dates: start: 20080723, end: 20090429
  4. DOCETAXEL [Suspect]
     Indication: LUNG NEOPLASM MALIGNANT
     Dosage: 84 MG, D1
     Route: 042
     Dates: start: 20090504, end: 20090504
  5. DEXAMETHASONE [Concomitant]
     Indication: CHEMOTHERAPY
     Dosage: 20 MG, D1
     Route: 042
     Dates: start: 20090504, end: 20090504
  6. METOCLOPRAMIDE [Concomitant]
     Indication: CHEMOTHERAPY
     Dosage: 20 MG, D1
     Route: 042
     Dates: start: 20090504, end: 20090504
  7. DIPHENHYDRAMINE [Concomitant]
     Indication: CHEMOTHERAPY
     Dosage: 60 MG, D1
     Route: 042
     Dates: start: 20090504, end: 20090504

REACTIONS (1)
  - MUSCULOSKELETAL CHEST PAIN [None]
